FAERS Safety Report 8485371-1 (Version None)
Quarter: 2012Q3

REPORT INFORMATION
  Report Type: 
  Country: None (occurrence: None)
  Receive Date: 20120703
  Receipt Date: 20120621
  Transmission Date: 20120928
  Serious: Yes (Hospitalization)
  Sender: FDA-Public Use
  Company Number: JP-VERTEX PHARMACEUTICALS INC.-AE-2012-009396

PATIENT
  Age: 69 Year
  Sex: Male

DRUGS (11)
  1. RIBAVIRIN [Concomitant]
     Route: 048
     Dates: start: 20120613
  2. FAMOTIDINE [Concomitant]
     Route: 048
  3. PEGINTERFERON ALFA-2B [Concomitant]
     Indication: HEPATITIS C
     Route: 058
     Dates: start: 20120509
  4. TELAVIC (TELAPREVIR) [Suspect]
     Indication: HEPATITIS C
     Route: 048
     Dates: start: 20120509
  5. RIBAVIRIN [Concomitant]
     Route: 048
     Dates: start: 20120521, end: 20120612
  6. NORVASC [Concomitant]
     Route: 048
  7. MICARDIS [Concomitant]
     Route: 048
  8. TAMSULOSIN HCL [Concomitant]
     Route: 048
  9. ESTAZOLAM [Concomitant]
     Route: 048
  10. RIBAVIRIN [Concomitant]
     Indication: HEPATITIS C
     Route: 048
     Dates: start: 20120509, end: 20120520
  11. ZOLPIDEM [Concomitant]
     Route: 048

REACTIONS (1)
  - RENAL IMPAIRMENT [None]
